FAERS Safety Report 7890932 (Version 2)
Quarter: 2012Q4

REPORT INFORMATION
  Report Type: Spontaneous
  Country: US (occurrence: None)
  Receive Date: 20110317
  Receipt Date: 20121012
  Transmission Date: 20130627
  Serious: Yes (Hospitalization, Other)
  Sender: FDA-Public Use
  Company Number: 2011MA001989

PATIENT
  Sex: Female
  Weight: 76.2 kg

DRUGS (21)
  1. METOCLOPRAMIDE [Suspect]
     Indication: GERD
     Route: 048
     Dates: start: 20030613, end: 20030730
  2. METOCLOPRAMIDE [Suspect]
     Indication: ILEUS
     Route: 048
     Dates: start: 20030613, end: 20030730
  3. METOCLOPRAMIDE [Suspect]
     Indication: NAUSEA
     Route: 048
     Dates: start: 20030613, end: 20030730
  4. ACIPHEX [Concomitant]
  5. ALBUTEROL [Concomitant]
  6. ALPRAZOLAM [Concomitant]
  7. APAP/CODEINE [Concomitant]
  8. CIPROFLOXACIN [Concomitant]
  9. DETROL [Concomitant]
  10. DIFLUCAN [Concomitant]
  11. ESTRADIOL [Concomitant]
  12. HYDROCODONE/APAP [Concomitant]
  13. LORAZEPAM [Concomitant]
  14. MACROBID [Concomitant]
  15. OXYBUTYNIN [Concomitant]
  16. RANITIDINE [Concomitant]
  17. SINGULAIR [Concomitant]
  18. TERAZOL CREAM [Concomitant]
  19. TRIMOX [Concomitant]
  20. WELLBUTRIN [Concomitant]
  21. XANAX [Concomitant]

REACTIONS (12)
  - Tardive dyskinesia [None]
  - Extrapyramidal disorder [None]
  - Economic problem [None]
  - Emotional disorder [None]
  - Small intestinal obstruction [None]
  - Dyspepsia [None]
  - Postoperative ileus [None]
  - Rectocele [None]
  - Mitral valve prolapse [None]
  - Bronchial hyperreactivity [None]
  - Gastrooesophageal reflux disease [None]
  - Urinary retention [None]
